FAERS Safety Report 4530318-3 (Version None)
Quarter: 2004Q4

REPORT INFORMATION
  Report Type: 
  Country: None (occurrence: None)
  Receive Date: 20041217
  Receipt Date: 20041206
  Transmission Date: 20050328
  Serious: Yes (Death)
  Sender: FDA-Public Use
  Company Number: US-ROCHE-388639

PATIENT
  Sex: Male

DRUGS (1)
  1. ENFUVIRTIDE [Suspect]
     Indication: DRUG USE FOR UNKNOWN INDICATION
     Dosage: RECEIVED THREE DOSES.
     Route: 065
     Dates: start: 19990615, end: 19990615

REACTIONS (2)
  - PNEUMONIA [None]
  - RESPIRATORY ARREST [None]
